FAERS Safety Report 8543733 (Version 2)
Quarter: 2013Q2

REPORT INFORMATION
  Report Type: Spontaneous
  Country: US (occurrence: None)
  Receive Date: 20120315
  Receipt Date: 20120426
  Transmission Date: 20140414
  Serious: Yes (Other)
  Sender: FDA-Public Use
  Company Number: PHHY2011US05127

PATIENT
  Age: 38 Year
  Sex: Female
  Weight: 50.8 kg

DRUGS (4)
  1. GILENYA [Suspect]
     Indication: MULTIPLE SCLEROSIS
     Dosage: 0.5 MG, QD, ORAL
     Route: 048
     Dates: start: 20110118
  2. TOPAMAX (TOPIRAMATE) [Concomitant]
  3. GABAPENTIN [Concomitant]
  4. ENTEX (GUAIFENESIN, PHENYLEPHRINE HYDROCHLORIDE) [Concomitant]

REACTIONS (3)
  - BLOOD PRESSURE DECREASED [None]
  - Hypoglycaemia [None]
  - Dizziness [None]
